FAERS Safety Report 10278410 (Version 3)
Quarter: 2014Q3

REPORT INFORMATION
  Report Type: Spontaneous
  Country: US (occurrence: US)
  Receive Date: 20140704
  Receipt Date: 20140806
  Transmission Date: 20150326
  Serious: Yes (Hospitalization)
  Sender: FDA-Public Use
  Company Number: US-SA-2014SA085522

PATIENT
  Age: 58 Year
  Sex: Female
  Weight: 81.64 kg

DRUGS (16)
  1. TRAMADOL [Concomitant]
     Active Substance: TRAMADOL
     Dosage: TAKE 1 TABLET BY MOUTH EVERY 4 HOURS AS NEEDED
  2. ACETAMINOPHEN. [Concomitant]
     Active Substance: ACETAMINOPHEN
     Indication: RHEUMATIC DISORDER
     Dosage: TAKE 650 MG BY MOUTH TWO TIMES DAILY AS NEEDED
  3. POTASSIUM CHLORIDE. [Concomitant]
     Active Substance: POTASSIUM CHLORIDE
     Indication: PAIN
     Route: 048
  4. METFORMIN [Suspect]
     Active Substance: METFORMIN HYDROCHLORIDE
     Indication: PRODUCT USED FOR UNKNOWN INDICATION
     Route: 065
  5. LANTUS [Suspect]
     Active Substance: INSULIN GLARGINE
     Indication: DIABETES MELLITUS
     Dosage: DOSE:80 UNIT(S)
     Route: 065
     Dates: start: 20140619
  6. ALBUTEROL. [Concomitant]
     Active Substance: ALBUTEROL
     Dosage: INHALE 2 PUFFS INTO THE LUNGS EVERY 4 HOURS AS NEEDED.
     Route: 055
  7. ASPIRIN. [Concomitant]
     Active Substance: ASPIRIN
     Dosage: 325 MG 1X AS NEEDED.
     Route: 048
  8. CITALOPRAM [Concomitant]
     Active Substance: CITALOPRAM HYDROBROMIDE
     Route: 048
  9. SULINDAC. [Concomitant]
     Active Substance: SULINDAC
     Route: 048
  10. ALBUTEROL. [Concomitant]
     Active Substance: ALBUTEROL
     Dosage: INHALE 2.5 MG INTO THE LUNGS EVERY 4 HOURS AS NEEDED
     Route: 055
  11. LANTUS [Suspect]
     Active Substance: INSULIN GLARGINE
     Indication: DIABETES MELLITUS
     Dosage: DOSE:80 UNIT(S)
     Route: 065
     Dates: start: 20001028
  12. GABAPENTIN. [Concomitant]
     Active Substance: GABAPENTIN
     Indication: NEUROPATHY PERIPHERAL
     Route: 048
  13. CRESTOR [Concomitant]
     Active Substance: ROSUVASTATIN CALCIUM
     Indication: BLOOD CHOLESTEROL
     Route: 048
  14. LISINOPRIL AND HYDROCHLOROTHIAZIDE [Concomitant]
     Active Substance: HYDROCHLOROTHIAZIDE\LISINOPRIL
     Indication: HYPERTENSION
     Route: 048
  15. NOVOLOG [Concomitant]
     Active Substance: INSULIN ASPART
     Indication: PRODUCT USED FOR UNKNOWN INDICATION
     Route: 065
  16. INSULIN GLARGINE [Concomitant]
     Active Substance: INSULIN GLARGINE
     Dosage: DOSE:80 UNIT(S)

REACTIONS (5)
  - Blood glucose increased [Not Recovered/Not Resolved]
  - Malaise [Unknown]
  - Drug dose omission [Unknown]
  - Coma [Unknown]
  - Feeling abnormal [Unknown]

NARRATIVE: CASE EVENT DATE: 199810
